FAERS Safety Report 8033251-8 (Version None)
Quarter: 2012Q1

REPORT INFORMATION
  Report Type: 
  Country: None (occurrence: None)
  Receive Date: 20120110
  Receipt Date: 20120105
  Transmission Date: 20120608
  Serious: Yes (Hospitalization, Other)
  Sender: FDA-Public Use
  Company Number: US-AMGEN-USASP2011042432

PATIENT
  Age: 47 Year
  Sex: Female
  Weight: 63.039 kg

DRUGS (2)
  1. TAMOXIFEN CITRATE [Concomitant]
     Dosage: UNK
  2. ENBREL [Suspect]
     Indication: RHEUMATOID ARTHRITIS
     Dosage: 50 MG, QWK
     Route: 058
     Dates: start: 20000101

REACTIONS (12)
  - DRUG HYPERSENSITIVITY [None]
  - BREAST RECONSTRUCTION [None]
  - NASOPHARYNGITIS [None]
  - RHEUMATOID ARTHRITIS [None]
  - MENORRHAGIA [None]
  - HAIR GROWTH ABNORMAL [None]
  - HYSTEROSALPINGO-OOPHORECTOMY [None]
  - UTERINE MASS [None]
  - ATTENTION DEFICIT/HYPERACTIVITY DISORDER [None]
  - DYSMENORRHOEA [None]
  - BREAST CANCER [None]
  - MENINGIOMA [None]
